FAERS Safety Report 7917543-6 (Version None)
Quarter: 2011Q4

REPORT INFORMATION
  Report Type: 
  Country: None (occurrence: None)
  Receive Date: 20111116
  Receipt Date: 20111107
  Transmission Date: 20120403
  Serious: Yes (Hospitalization)
  Sender: FDA-Public Use
  Company Number: US-NOVOPROD-335883

PATIENT

DRUGS (6)
  1. METOPROLOL SUCCINATE [Concomitant]
     Indication: HYPERTENSION
     Dosage: 200 MG, QD
     Route: 048
  2. LEVEMIR [Suspect]
     Indication: DIABETES MELLITUS
     Dosage: 34 U, BID
     Route: 058
  3. AVAPRO [Concomitant]
     Indication: HYPERTENSION
     Dosage: 150 MG, BID
     Route: 048
  4. NOVOLOG [Suspect]
     Indication: DIABETES MELLITUS
     Dosage: SCALE BEFORE BREAKFAST, LUNCH, DINNER AND EVEN BEDTIME
     Route: 058
     Dates: start: 20090625
  5. PANTOPRAZOLE [Concomitant]
     Indication: PRODUCT USED FOR UNKNOWN INDICATION
     Dosage: 40 MG, QD
     Route: 048
  6. AMLODIPINE [Concomitant]
     Indication: HYPERTENSION
     Dosage: 5 MG, QD
     Route: 048

REACTIONS (9)
  - OVERDOSE [None]
  - ORAL CANDIDIASIS [None]
  - DIZZINESS [None]
  - PANCREATITIS [None]
  - CONVULSION [None]
  - HYPOGLYCAEMIA [None]
  - ATRIAL FIBRILLATION [None]
  - DIABETIC COMA [None]
  - OESOPHAGEAL CANDIDIASIS [None]
